FAERS Safety Report 12447084 (Version 1)
Quarter: 2016Q2

REPORT INFORMATION
  Report Type: Other
  Country: US (occurrence: US)
  Receive Date: 20160608
  Receipt Date: 20160608
  Transmission Date: 20160815
  Serious: Yes (Hospitalization, Other)
  Sender: FDA-Public Use
  Company Number: US-PURDUE-USA-2016-0131417

PATIENT
  Age: 21 Year
  Sex: Male

DRUGS (4)
  1. BUPRENORPHINE W/NALOXONE [Suspect]
     Active Substance: BUPRENORPHINE HYDROCHLORIDE\NALOXONE HYDROCHLORIDE
     Indication: PRODUCT USED FOR UNKNOWN INDICATION
     Route: 065
  2. OXYCODONE HYDROCHLORIDE (SIMILAR TO NDA 22-272) [Suspect]
     Active Substance: OXYCODONE HYDROCHLORIDE
     Indication: PRODUCT USED FOR UNKNOWN INDICATION
     Dosage: 60 MG, UNK
     Route: 048
  3. OXYMORPHONE [Suspect]
     Active Substance: OXYMORPHONE
     Indication: PRODUCT USED FOR UNKNOWN INDICATION
     Dosage: 10 MG, UNK
     Route: 048
  4. HEROIN [Suspect]
     Active Substance: DIACETYLMORPHINE
     Indication: DRUG ABUSE

REACTIONS (22)
  - Hyperhidrosis [Recovered/Resolved]
  - Diarrhoea [Recovered/Resolved]
  - Pharyngeal oedema [Recovered/Resolved]
  - Drug abuse [Unknown]
  - Drug withdrawal syndrome [Recovered/Resolved]
  - Delirium [Recovered/Resolved]
  - Dyspnoea [Recovered/Resolved]
  - Hot flush [Recovered/Resolved]
  - Oesophageal perforation [Recovered/Resolved]
  - Pneumomediastinum [Recovered/Resolved]
  - Nausea [Recovered/Resolved]
  - Muscle spasms [Recovered/Resolved]
  - Restlessness [Recovered/Resolved]
  - Agitation [Recovered/Resolved]
  - Acute kidney injury [Unknown]
  - Chills [Recovered/Resolved]
  - Musculoskeletal stiffness [Recovered/Resolved]
  - Rhabdomyolysis [Recovered/Resolved]
  - Hallucinations, mixed [Recovered/Resolved]
  - Piloerection [Recovered/Resolved]
  - Vomiting [Recovered/Resolved]
  - Anxiety [Recovered/Resolved]
